FAERS Safety Report 16657823 (Version 1)
Quarter: 2019Q3

REPORT INFORMATION
  Report Type: Spontaneous
  Country: DE (occurrence: DE)
  Receive Date: 20190801
  Receipt Date: 20190801
  Transmission Date: 20191004
  Serious: Yes (Other)
  Sender: FDA-Public Use
  Company Number: DE-BAUSCH-BL-2019-021497

PATIENT
  Age: 61 Year
  Sex: Female

DRUGS (3)
  1. VENLAFAXINE PUREN PROLONGED RELEASE CAPSULES HARD 37.5MG [Suspect]
     Active Substance: VENLAFAXINE HYDROCHLORIDE
     Indication: DEPRESSION
     Dosage: DAILY
     Route: 048
     Dates: start: 2016
  2. VENLAFAXINE PUREN PROLONGED RELEASE CAPSULES HARD 37.5MG [Suspect]
     Active Substance: VENLAFAXINE HYDROCHLORIDE
     Dosage: DAILY
     Route: 048
     Dates: start: 2019
  3. VENLAFAXINE [Suspect]
     Active Substance: VENLAFAXINE HYDROCHLORIDE
     Indication: DEPRESSION
     Route: 048
     Dates: start: 2012

REACTIONS (7)
  - Incorrect dose administered [Unknown]
  - Paraesthesia [Recovering/Resolving]
  - Nausea [Recovering/Resolving]
  - Withdrawal syndrome [Not Recovered/Not Resolved]
  - Drug dependence [Not Recovered/Not Resolved]
  - Dizziness [Recovering/Resolving]
  - Wrong technique in product usage process [Unknown]

NARRATIVE: CASE EVENT DATE: 2012
